FAERS Safety Report 9078386 (Version 1)
Quarter: 2013Q1

REPORT INFORMATION
  Report Type: Report from Study
  Country: US (occurrence: US)
  Receive Date: 20130130
  Receipt Date: 20130130
  Transmission Date: 20140127
  Serious: No
  Sender: FDA-Public Use
  Company Number: US-ABBOTT-12P-163-0974679-00

PATIENT
  Age: 73 None
  Sex: Female

DRUGS (2)
  1. HUMIRA [Suspect]
     Indication: RHEUMATOID ARTHRITIS
     Dates: start: 201204
  2. METHOTREXATE [Concomitant]
     Indication: RHEUMATOID ARTHRITIS

REACTIONS (4)
  - Incorrect dose administered [Unknown]
  - Device malfunction [Unknown]
  - Injection site haemorrhage [Recovered/Resolved]
  - Injection site haemorrhage [Recovered/Resolved]
